FAERS Safety Report 5014731-6 (Version None)
Quarter: 2006Q2

REPORT INFORMATION
  Report Type: 
  Country: None (occurrence: None)
  Receive Date: 20060531
  Receipt Date: 20060503
  Transmission Date: 20061013
  Serious: Yes (Hospitalization)
  Sender: FDA-Public Use
  Company Number: J200601241

PATIENT
  Age: 47 Year
  Sex: Male

DRUGS (8)
  1. SAWACILLIN [Suspect]
     Dosage: 750MG TWICE PER DAY
     Route: 048
     Dates: start: 20060415, end: 20060419
  2. OMEPROL [Concomitant]
     Dosage: 20MG TWICE PER DAY
     Route: 048
     Dates: start: 20060415, end: 20060418
  3. FLAGYL [Concomitant]
     Dosage: 250MG TWICE PER DAY
     Route: 048
     Dates: start: 20060415, end: 20060418
  4. AROTINOLOL HYDROCHLORIDE [Concomitant]
     Indication: HYPERTENSION
     Dosage: 10MG PER DAY
     Route: 048
     Dates: start: 20031014
  5. ADALAT [Concomitant]
     Indication: HYPERTENSION
     Dosage: 20MG PER DAY
     Route: 048
     Dates: start: 20031001
  6. BEPRICOR [Concomitant]
     Indication: ARRHYTHMIA
     Dosage: 100MG TWICE PER DAY
     Route: 048
     Dates: start: 20060316
  7. MEDIPEACE [Concomitant]
     Indication: ANXIETY
     Dosage: .5MG TWICE PER DAY
     Route: 048
     Dates: start: 20060401
  8. RADEN [Concomitant]
     Dosage: 150MG PER DAY
     Route: 048

REACTIONS (4)
  - ABDOMINAL PAIN [None]
  - DIARRHOEA [None]
  - ENTEROCOLITIS HAEMORRHAGIC [None]
  - OCCULT BLOOD [None]
